FAERS Safety Report 7501750-0 (Version None)
Quarter: 2011Q2

REPORT INFORMATION
  Report Type: 
  Country: None (occurrence: None)
  Receive Date: 20110525
  Receipt Date: 20110513
  Transmission Date: 20111010
  Serious: Yes (Hospitalization, Other)
  Sender: FDA-Public Use
  Company Number: FR-BRISTOL-MYERS SQUIBB COMPANY-15747157

PATIENT
  Age: 49 Year
  Sex: Male

DRUGS (5)
  1. ISENTRESS [Suspect]
     Indication: HIV INFECTION
     Dates: start: 20091221
  2. NORVIR [Suspect]
     Indication: ANTIRETROVIRAL THERAPY
     Dates: start: 20081001
  3. TENOFOVIR DISOPROXIL FUMARATE [Suspect]
     Indication: ANTIRETROVIRAL THERAPY
     Dates: start: 20081001
  4. VIDEX EC [Suspect]
     Indication: HIV INFECTION
     Dosage: 29APR02 TO 01JUL02,01JUL02 TO 01JAN04,01JAN04 TO 01OCT08
     Route: 048
     Dates: start: 20020429, end: 20091221
  5. REYATAZ [Suspect]
     Indication: ANTIRETROVIRAL THERAPY
     Dates: start: 20081001

REACTIONS (5)
  - RETINAL DEGENERATION [None]
  - HEPATIC FIBROSIS [None]
  - PORTAL HYPERTENSION [None]
  - NODULAR REGENERATIVE HYPERPLASIA [None]
  - CYTOLYTIC HEPATITIS [None]
